FAERS Safety Report 26155281 (Version 1)
Quarter: 2025Q4

REPORT INFORMATION
  Report Type: Spontaneous
  Country: GB (occurrence: None)
  Receive Date: 20251215
  Receipt Date: 20251215
  Transmission Date: 20260118
  Serious: Yes (Other)
  Sender: ORGANON
  Company Number: None

PATIENT
  Age: 74 Year
  Sex: Female

DRUGS (5)
  1. MIRTAZAPINE [Suspect]
     Active Substance: MIRTAZAPINE
     Indication: Anxiety
     Dosage: 50 MILLIGRAM, QD
     Dates: end: 20250731
  2. ESOMEPRAZOLE [Concomitant]
     Active Substance: ESOMEPRAZOLE
     Indication: Gastritis
     Dosage: UNK
  3. CITALOPRAM [Concomitant]
     Active Substance: CITALOPRAM
     Indication: Anxiety
     Dosage: UNK
  4. EZETIMIBE [Concomitant]
     Active Substance: EZETIMIBE
     Indication: Blood cholesterol increased
     Dosage: UNK
  5. FAMOTIDINE [Concomitant]
     Active Substance: FAMOTIDINE
     Indication: Gastritis
     Dosage: UNK

REACTIONS (10)
  - Diabetes mellitus inadequate control [Unknown]
  - Bradykinesia [Unknown]
  - Hepatic steatosis [Unknown]
  - Malaise [Unknown]
  - Pain [Unknown]
  - Epiploic appendagitis [Unknown]
  - Fatigue [Unknown]
  - Dry mouth [Unknown]
  - Weight increased [Unknown]
  - Product use in unapproved indication [Unknown]
